FAERS Safety Report 20906706 (Version 1)
Quarter: 2022Q2

REPORT INFORMATION
  Report Type: Spontaneous
  Country: CN (occurrence: None)
  Receive Date: 20220602
  Receipt Date: 20220602
  Transmission Date: 20220721
  Serious: Yes (Hospitalization, Other)
  Sender: FDA-Public Use
  Company Number: CN-ROCHE-3104864

PATIENT
  Age: 78 Year
  Sex: Male
  Weight: 53 kg

DRUGS (7)
  1. LEUCOVORIN CALCIUM [Suspect]
     Active Substance: LEUCOVORIN CALCIUM
     Indication: Signet-ring cell carcinoma
     Route: 041
     Dates: start: 20210811
  2. FLUOROURACIL [Suspect]
     Active Substance: FLUOROURACIL
     Indication: Signet-ring cell carcinoma
     Route: 042
     Dates: start: 20210811
  3. FLUOROURACIL [Suspect]
     Active Substance: FLUOROURACIL
     Dosage: CONTINUE LASTING FOR 46 HOURS
     Route: 042
     Dates: start: 20210811
  4. IRINOTECAN HYDROCHLORIDE [Suspect]
     Active Substance: IRINOTECAN HYDROCHLORIDE
     Indication: Signet-ring cell carcinoma
     Route: 041
     Dates: start: 20210811
  5. BEVACIZUMAB [Suspect]
     Active Substance: BEVACIZUMAB
     Indication: Signet-ring cell carcinoma
     Route: 041
     Dates: start: 20210811
  6. OLANZAPINE [Concomitant]
     Active Substance: OLANZAPINE
     Route: 048
     Dates: start: 20210811
  7. PALONOSETRON HYDROCHLORIDE [Concomitant]
     Active Substance: PALONOSETRON HYDROCHLORIDE
     Route: 041
     Dates: start: 20210811

REACTIONS (2)
  - Myelosuppression [Unknown]
  - Off label use [Unknown]

NARRATIVE: CASE EVENT DATE: 20210811
